FAERS Safety Report 4996386-X (Version None)
Quarter: 2006Q2

REPORT INFORMATION
  Report Type: 
  Country: None (occurrence: None)
  Receive Date: 20060509
  Receipt Date: 20060427
  Transmission Date: 20061013
  Serious: Yes (Hospitalization)
  Sender: FDA-Public Use
  Company Number: FR-JNJFOC-20060406018

PATIENT
  Age: 67 Year
  Sex: Male

DRUGS (5)
  1. RISPERDAL [Suspect]
     Route: 048
  2. ARTANE [Suspect]
     Indication: DRUG USE FOR UNKNOWN INDICATION
     Route: 065
     Dates: start: 20060308, end: 20060314
  3. NOZINAN [Suspect]
     Route: 065
  4. NOZINAN [Suspect]
     Route: 065
  5. LOXEN [Suspect]
     Route: 065

REACTIONS (1)
  - AGRANULOCYTOSIS [None]
